FAERS Safety Report 21603274 (Version 2)
Quarter: 2022Q4

REPORT INFORMATION
  Report Type: Spontaneous
  Country: FR (occurrence: FR)
  Receive Date: 20221116
  Receipt Date: 20221219
  Transmission Date: 20230112
  Serious: Yes (Other)
  Sender: FDA-Public Use
  Company Number: FR-009507513-2209FRA006378

PATIENT
  Age: 70 Year
  Sex: Female

DRUGS (5)
  1. CARBOPLATIN [Suspect]
     Active Substance: CARBOPLATIN
     Indication: Product used for unknown indication
     Dosage: UNK
     Route: 042
     Dates: start: 20220713
  2. CARBOPLATIN [Suspect]
     Active Substance: CARBOPLATIN
     Indication: Chemotherapy
     Dosage: UNK, 1.5 AUC (DAY 1, DAY 8, DAY 15)
     Route: 042
     Dates: start: 20220719
  3. KEYTRUDA [Suspect]
     Active Substance: PEMBROLIZUMAB
     Indication: Triple negative breast cancer
     Dosage: 200MILLIGRAM,Q3W(200 MG EVERY 3 WEEKS)
     Route: 065
     Dates: start: 20220719
  4. PACLITAXEL [Suspect]
     Active Substance: PACLITAXEL
     Indication: Chemotherapy
     Dosage: UNK, ~60 MG/M2 (DAY 1, DAY 8, DAY 15)
     Route: 042
     Dates: start: 20220719
  5. PACLITAXEL [Suspect]
     Active Substance: PACLITAXEL
     Route: 042
     Dates: start: 20220913

REACTIONS (7)
  - Neuropathy peripheral [Unknown]
  - Dyspepsia [Recovered/Resolved]
  - Blood test abnormal [Unknown]
  - Toxicity to various agents [Recovered/Resolved]
  - Pruritus [Recovering/Resolving]
  - Asthenia [Unknown]
  - Drug hypersensitivity [Recovered/Resolved]

NARRATIVE: CASE EVENT DATE: 20220830
